FAERS Safety Report 8288912-2 (Version None)
Quarter: 2012Q2

REPORT INFORMATION
  Report Type: 
  Country: None (occurrence: None)
  Receive Date: 20120412
  Receipt Date: 20120329
  Transmission Date: 20120825
  Serious: Yes (Hospitalization)
  Sender: FDA-Public Use
  Company Number: US-2011-10236

PATIENT
  Age: 37 Year
  Sex: Male

DRUGS (6)
  1. OPC-41061 (TOLVAPTAN) TABLET, 30MG MILLIGRAM(S) [Suspect]
     Indication: CONGENITAL CYSTIC KIDNEY DISEASE
     Dosage: 120 MG MILLIGRAM(S), DAILY DOSE, ORAL 60 MG MILLIGRAM(S), DAILY DOSE, ORAL
     Route: 048
     Dates: start: 20110428
  2. OPC-41061 (TOLVAPTAN) TABLET, 30MG MILLIGRAM(S) [Suspect]
     Indication: CONGENITAL CYSTIC KIDNEY DISEASE
     Dosage: 120 MG MILLIGRAM(S), DAILY DOSE, ORAL 60 MG MILLIGRAM(S), DAILY DOSE, ORAL
     Route: 048
     Dates: start: 20110329, end: 20110416
  3. FISH OIL (FISH OIL) [Concomitant]
  4. CIPRO [Concomitant]
  5. JUICE PLUS (AMYLASE, ASCORBIC ACID, CELLUASE, FOLIC ACID LIPASE, PROTE [Concomitant]
  6. LISINOPRIL [Concomitant]

REACTIONS (5)
  - ANAEMIA [None]
  - ABDOMINAL PAIN [None]
  - RENAL FAILURE ACUTE [None]
  - HAEMATURIA [None]
  - BLOOD CHLORIDE INCREASED [None]
